FAERS Safety Report 23569189 (Version 1)
Quarter: 2024Q1

REPORT INFORMATION
  Report Type: Spontaneous
  Country: PT (occurrence: PT)
  Receive Date: 20240227
  Receipt Date: 20240227
  Transmission Date: 20240409
  Serious: Yes (Other)
  Sender: FDA-Public Use
  Company Number: None

PATIENT
  Age: 65 Year
  Sex: Female

DRUGS (7)
  1. GABAPENTIN [Suspect]
     Active Substance: GABAPENTIN
     Indication: Pain management
     Dosage: TIME INTERVAL: 1 TOTAL: GABAPENTINA, SINGLE DOSE
     Route: 048
     Dates: start: 20231006, end: 20231006
  2. EGOSTAR [Concomitant]
     Indication: Product used for unknown indication
     Dosage: MONTHLY
     Route: 048
  3. DIAZEPAM [Concomitant]
     Active Substance: DIAZEPAM
     Indication: Product used for unknown indication
     Dosage: 5 MG ID
     Route: 048
  4. SUCRALFATE [Concomitant]
     Active Substance: SUCRALFATE
     Indication: Product used for unknown indication
     Dosage: TIME INTERVAL: 1 AS NECESSARY: IN SOS IN ORAL COMPLAINTS
     Route: 048
  5. CIANOCOBALAMINA [Concomitant]
     Indication: Product used for unknown indication
     Dosage: INTRAMUSCULAR AT THE HEALTH CENTER 4/4 MONTHS
     Route: 030
  6. BROTIZOLAM [Concomitant]
     Active Substance: BROTIZOLAM
     Indication: Product used for unknown indication
     Dosage: 0.25 MG ID
     Route: 048
  7. ACETAMINOPHEN [Concomitant]
     Active Substance: ACETAMINOPHEN
     Indication: Product used for unknown indication
     Route: 054

REACTIONS (4)
  - Headache [Recovered/Resolved]
  - Nausea [Recovered/Resolved]
  - Asthenia [Recovered/Resolved]
  - Dizziness [Recovered/Resolved]

NARRATIVE: CASE EVENT DATE: 20231006
